FAERS Safety Report 4313119-0 (Version None)
Quarter: 2004Q1

REPORT INFORMATION
  Report Type: 
  Country: None (occurrence: None)
  Receive Date: 20040304
  Receipt Date: 20040213
  Transmission Date: 20041129
  Serious: Yes (Hospitalization)
  Sender: FDA-Public Use
  Company Number: FR_040203609

PATIENT
  Age: 60 Year
  Sex: Male

DRUGS (2)
  1. CIALIS [Suspect]
     Indication: ERECTILE DYSFUNCTION
     Dosage: 20 MG/DAY
     Dates: start: 20040101, end: 20040101
  2. AMLOR [Concomitant]

REACTIONS (4)
  - AMNESIA [None]
  - CAROTID ARTERY ATHEROMA [None]
  - DRUG INTERACTION [None]
  - HYPOTENSION [None]
